FAERS Safety Report 5788396-X (Version None)
Quarter: 2008Q2

REPORT INFORMATION
  Report Type: 
  Country: None (occurrence: None)
  Receive Date: 20080625
  Receipt Date: 20080613
  Transmission Date: 20081010
  Serious: Yes (Other)
  Sender: FDA-Public Use
  Company Number: DE-PFIZER INC-2008052565

PATIENT
  Sex: Female

DRUGS (1)
  1. NEURONTIN [Suspect]
     Indication: DYSAESTHESIA
     Route: 048

REACTIONS (3)
  - DIZZINESS [None]
  - PAIN [None]
  - VISUAL DISTURBANCE [None]
